FAERS Safety Report 9767687 (Version 2)
Quarter: 2018Q1

REPORT INFORMATION
  Report Type: Spontaneous
  Country: US (occurrence: US)
  Receive Date: 20131217
  Receipt Date: 20180201
  Transmission Date: 20180509
  Serious: No
  Sender: FDA-Public Use
  Company Number: US-BAYER-2013-151247

PATIENT
  Age: 69 Year
  Sex: Female

DRUGS (1)
  1. CLIMARA PRO [Suspect]
     Active Substance: ESTRADIOL\LEVONORGESTREL
     Indication: MENOPAUSE
     Dosage: UNK
     Route: 062
     Dates: start: 1994

REACTIONS (4)
  - Menopausal symptoms [Not Recovered/Not Resolved]
  - Suspected counterfeit product [None]
  - Drug ineffective [None]
  - Therapeutic response unexpected [Unknown]

NARRATIVE: CASE EVENT DATE: 20131206
